FAERS Safety Report 10045873 (Version 1)
Quarter: 2014Q1

REPORT INFORMATION
  Report Type: Report from Study
  Country: US (occurrence: US)
  Receive Date: 20140329
  Receipt Date: 20140329
  Transmission Date: 20141002
  Serious: Yes (Life-Threatening)
  Sender: FDA-Public Use
  Company Number: US-ROCHE-1371783

PATIENT
  Age: 75 Year
  Sex: Female

DRUGS (1)
  1. TOCILIZUMAB [Suspect]
     Indication: RHEUMATOID ARTHRITIS
     Route: 042
     Dates: start: 20140324, end: 20140324

REACTIONS (3)
  - Chest pain [Not Recovered/Not Resolved]
  - Dyspnoea [Not Recovered/Not Resolved]
  - Loss of consciousness [Unknown]
